FAERS Safety Report 8890713 (Version 3)
Quarter: 2013Q2

REPORT INFORMATION
  Report Type: Spontaneous
  Country: US (occurrence: US)
  Receive Date: 20121106
  Receipt Date: 20130510
  Transmission Date: 20140414
  Serious: No
  Sender: FDA-Public Use
  Company Number: US-009507513-1211USA002086

PATIENT
  Age: 18 Year
  Sex: Female
  Weight: 71.2 kg

DRUGS (1)
  1. IMPLANON [Suspect]
     Indication: CONTRACEPTION
     Dosage: 1 68 MG ROD FOR UP TO 3 YRS
     Route: 059
     Dates: start: 20110823, end: 20121031

REACTIONS (7)
  - Axillary pain [Recovered/Resolved]
  - Skin lesion [Recovered/Resolved]
  - Mass [Unknown]
  - Metrorrhagia [Recovered/Resolved]
  - Pain in extremity [Recovered/Resolved]
  - Local swelling [Recovered/Resolved]
  - Maternal exposure before pregnancy [Unknown]
